FAERS Safety Report 23229655 (Version 2)
Quarter: 2024Q4

REPORT INFORMATION
  Report Type: Report from Study
  Country: US (occurrence: US)
  Receive Date: 20231127
  Receipt Date: 20241022
  Transmission Date: 20250115
  Serious: No
  Sender: ROCHE
  Company Number: US-ROCHE-3256899

PATIENT
  Age: 40 Year
  Sex: Female

DRUGS (13)
  1. PULMOZYME [Suspect]
     Active Substance: DORNASE ALFA
     Indication: Primary ciliary dyskinesia
     Dosage: YES
     Route: 065
  2. PULMOZYME [Suspect]
     Active Substance: DORNASE ALFA
     Indication: Bronchiectasis
  3. PROVENTIL HFA [Concomitant]
     Active Substance: ALBUTEROL SULFATE
     Dosage: 1 PUFF
     Route: 055
  4. ASTELIN [Concomitant]
     Active Substance: AZELASTINE HYDROCHLORIDE
     Dosage: 2 SPRAYS
     Route: 055
     Dates: start: 20200320
  5. PULMICORT TURBUHALER [Concomitant]
     Active Substance: BUDESONIDE
     Dosage: NEBULIZATION
     Dates: start: 20200320
  6. CIPRODEX (UNITED STATES) [Concomitant]
     Route: 045
     Dates: start: 20200320
  7. ARMOUR THYROID [Concomitant]
     Active Substance: THYROID, PORCINE
     Dates: start: 20170719
  8. ANORO ELLIPTA [Concomitant]
     Active Substance: UMECLIDINIUM BROMIDE\VILANTEROL TRIFENATATE
  9. SODIUM CHLORIDE [Concomitant]
     Active Substance: SODIUM CHLORIDE
  10. BUDESONIDE [Concomitant]
     Active Substance: BUDESONIDE
  11. CEFTAZIDIME [Concomitant]
     Active Substance: CEFTAZIDIME
  12. METRONIDAZOLE [Concomitant]
     Active Substance: METRONIDAZOLE
  13. KETOCONAZOLE [Concomitant]
     Active Substance: KETOCONAZOLE

REACTIONS (9)
  - Intentional product misuse [Unknown]
  - Off label use [Unknown]
  - Cough [Unknown]
  - Secretion discharge [Unknown]
  - COVID-19 [Recovered/Resolved]
  - Gastroenteritis viral [Unknown]
  - Dyspepsia [Unknown]
  - Abdominal distension [Unknown]
  - Flatulence [Unknown]

NARRATIVE: CASE EVENT DATE: 20211001
